FAERS Safety Report 12399047 (Version 2)
Quarter: 2016Q2

REPORT INFORMATION
  Report Type: Spontaneous
  Country: US (occurrence: US)
  Receive Date: 20160524
  Receipt Date: 20160525
  Transmission Date: 20160815
  Serious: Yes (Other)
  Sender: FDA-Public Use
  Company Number: US-BAYER-2016-099388

PATIENT
  Age: 21 Year
  Sex: Female

DRUGS (1)
  1. MIRENA [Suspect]
     Active Substance: LEVONORGESTREL
     Indication: CONTRACEPTION
     Dosage: 20 MCG/24HR, CONT
     Route: 015
     Dates: start: 201204, end: 20160512

REACTIONS (5)
  - Post procedural haemorrhage [Recovered/Resolved]
  - Feeling abnormal [None]
  - Nipple pain [None]
  - Alopecia [None]
  - Maternal exposure before pregnancy [None]

NARRATIVE: CASE EVENT DATE: 201605
